FAERS Safety Report 15369551 (Version 2)
Quarter: 2018Q3

REPORT INFORMATION
  Report Type: Spontaneous
  Country: US (occurrence: US)
  Receive Date: 20180911
  Receipt Date: 20180921
  Transmission Date: 20181010
  Serious: No
  Sender: FDA-Public Use
  Company Number: US-PFIZER INC-2018364769

PATIENT
  Age: 18 Year
  Sex: Male

DRUGS (1)
  1. GENOTROPIN [Suspect]
     Active Substance: SOMATROPIN
     Indication: PSYCHOTIC DISORDER
     Dosage: 0.3 MG, DAILY
     Dates: start: 20170104

REACTIONS (9)
  - Tri-iodothyronine free decreased [Unknown]
  - Blood corticotrophin decreased [Unknown]
  - Blood follicle stimulating hormone decreased [Unknown]
  - Dehydroepiandrosterone decreased [Unknown]
  - Blood glucose decreased [Unknown]
  - Blood luteinising hormone decreased [Unknown]
  - Blood thyroid stimulating hormone decreased [Unknown]
  - Product use in unapproved indication [Unknown]
  - Insulin-like growth factor decreased [Unknown]

NARRATIVE: CASE EVENT DATE: 20180330
